FAERS Safety Report 5395455-2 (Version None)
Quarter: 2007Q3

REPORT INFORMATION
  Report Type: 
  Country: None (occurrence: None)
  Receive Date: 20070724
  Receipt Date: 20070718
  Transmission Date: 20080115
  Serious: Yes (Other)
  Sender: FDA-Public Use
  Company Number: A0665613A

PATIENT
  Sex: Female

DRUGS (1)
  1. LAMICTAL [Suspect]
     Indication: DRUG USE FOR UNKNOWN INDICATION
     Dosage: 100MG TWICE PER DAY
     Route: 048

REACTIONS (5)
  - CHOKING [None]
  - DYSPHAGIA [None]
  - FOREIGN BODY TRAUMA [None]
  - RETCHING [None]
  - VOMITING [None]
